FAERS Safety Report 14230207 (Version 3)
Quarter: 2018Q1

REPORT INFORMATION
  Report Type: Report from Study
  Country: IT (occurrence: IT)
  Receive Date: 20171128
  Receipt Date: 20180215
  Transmission Date: 20180508
  Serious: Yes (Hospitalization)
  Sender: FDA-Public Use
  Company Number: IT-ROCHE-2019869

PATIENT
  Age: 67 Year
  Sex: Male
  Weight: 74.5 kg

DRUGS (36)
  1. SOLDESAM [Concomitant]
     Active Substance: DEXAMETHASONE
     Route: 065
     Dates: start: 20170925, end: 20170925
  2. TARGIN [Concomitant]
     Active Substance: NALOXONE HYDROCHLORIDE\OXYCODONE HYDROCHLORIDE
     Route: 065
     Dates: start: 20170703
  3. TARGIN [Concomitant]
     Active Substance: NALOXONE HYDROCHLORIDE\OXYCODONE HYDROCHLORIDE
     Route: 065
     Dates: start: 20170626
  4. BEVACIZUMAB. [Suspect]
     Active Substance: BEVACIZUMAB
     Indication: COLORECTAL CANCER METASTATIC
     Dosage: 15-30 MINUTE, ON DAY 1 OF EVERY 2-WEEK CYCLE PER LOCAL PRESCRIBING INFORMATION.?MOST RECENT DOSE OF
     Route: 042
     Dates: start: 20170704
  5. AMLODIPINA [Concomitant]
     Active Substance: AMLODIPINE BESYLATE
     Route: 065
     Dates: start: 20170822, end: 20170825
  6. HEPARIN CREAM [Concomitant]
     Indication: PHLEBITIS
     Route: 065
     Dates: start: 20170731
  7. MYCOSTATIN [Concomitant]
     Active Substance: NYSTATIN
     Indication: STOMATITIS
     Route: 065
     Dates: start: 20171006
  8. ONDANSETRON [Concomitant]
     Active Substance: ONDANSETRON
     Route: 065
     Dates: start: 20170828, end: 20170828
  9. PREGABALIN. [Concomitant]
     Active Substance: PREGABALIN
     Indication: PARAESTHESIA
     Route: 065
     Dates: start: 20171020
  10. SOLDESAM [Concomitant]
     Active Substance: DEXAMETHASONE
     Indication: PREMEDICATION
     Route: 065
     Dates: start: 20170802, end: 20170802
  11. SOLDESAM [Concomitant]
     Active Substance: DEXAMETHASONE
     Route: 065
     Dates: start: 20170911, end: 20170911
  12. FOLINIC ACID [Suspect]
     Active Substance: LEUCOVORIN
     Indication: COLORECTAL CANCER METASTATIC
     Dosage: VIA 2-HOUR INFUSION ON DAY 1 OF EVERY 2-WEEK CYCLE?MOST RECENT DOSE OF FOLINIC ACID (388 MG) PRIOR T
     Route: 042
     Dates: start: 20170704
  13. GLUCOSE [Concomitant]
     Active Substance: DEXTROSE
     Indication: DECREASED APPETITE
     Route: 065
     Dates: start: 20171028
  14. LANSOPRAZOLO [Concomitant]
     Active Substance: LANSOPRAZOLE
     Route: 065
     Dates: start: 2011
  15. ONDANSETRON [Concomitant]
     Active Substance: ONDANSETRON
     Route: 065
     Dates: start: 20170704, end: 20170705
  16. PURSENID [Concomitant]
     Indication: CONSTIPATION
     Route: 065
     Dates: start: 20170706
  17. SIMVASTATINA [Concomitant]
     Active Substance: SIMVASTATIN
     Route: 065
     Dates: start: 2011
  18. SOLDESAM [Concomitant]
     Active Substance: DEXAMETHASONE
     Route: 065
     Dates: start: 20170718, end: 20170719
  19. KEPPRA [Concomitant]
     Active Substance: LEVETIRACETAM
     Indication: SEIZURE
     Route: 065
     Dates: start: 20171101, end: 20171214
  20. ONDANSETRON [Concomitant]
     Active Substance: ONDANSETRON
     Route: 065
     Dates: start: 20171009, end: 20171009
  21. SOLDESAM [Concomitant]
     Active Substance: DEXAMETHASONE
     Route: 065
     Dates: start: 20171009, end: 20171009
  22. SOLDESAM [Concomitant]
     Active Substance: DEXAMETHASONE
     Route: 065
     Dates: start: 20170828, end: 20170828
  23. ONDANSETRON [Concomitant]
     Active Substance: ONDANSETRON
     Route: 065
     Dates: start: 20170802, end: 20170802
  24. ONDANSETRON [Concomitant]
     Active Substance: ONDANSETRON
     Route: 065
     Dates: start: 20170718, end: 20170719
  25. OXALIPLATIN. [Suspect]
     Active Substance: OXALIPLATIN
     Indication: COLORECTAL CANCER METASTATIC
     Dosage: MOST RECENT DOSE OF OXALIPLATIN (155 MG) PRIOR TO AE ONSET: 23/OCT/2017 AT 10:21
     Route: 042
     Dates: start: 20170704
  26. AMLODIPINA [Concomitant]
     Active Substance: AMLODIPINE BESYLATE
     Indication: HYPERTENSION
     Route: 065
     Dates: start: 20170825
  27. MYCOSTATIN [Concomitant]
     Active Substance: NYSTATIN
     Route: 065
     Dates: start: 20171012
  28. ONDANSETRON [Concomitant]
     Active Substance: ONDANSETRON
     Route: 065
     Dates: start: 20170911, end: 20170911
  29. ONDANSETRON [Concomitant]
     Active Substance: ONDANSETRON
     Route: 065
     Dates: start: 20170925, end: 20170925
  30. LEVOXACIN [Concomitant]
     Active Substance: LEVOFLOXACIN
     Indication: NEUTROPHIL COUNT DECREASED
     Route: 065
     Dates: start: 20171101
  31. TRANQUIRIT [Concomitant]
     Active Substance: DIAZEPAM
     Indication: INSOMNIA
     Route: 065
     Dates: start: 20171130
  32. 5-FLUOROURACIL [Suspect]
     Active Substance: FLUOROURACIL
     Indication: COLORECTAL CANCER METASTATIC
     Dosage: 1600-2400 MG/M^2 VIA 46-HOUR INFUSION?MOST RECENT DOSE OF IV FLUOROURACIL BOLUS (776 MG) AND FLUOROU
     Route: 042
     Dates: start: 20170704
  33. ONDANSETRON [Concomitant]
     Active Substance: ONDANSETRON
     Indication: NAUSEA
     Route: 065
     Dates: start: 20170707, end: 20170707
  34. ONDANSETRON [Concomitant]
     Active Substance: ONDANSETRON
     Route: 065
     Dates: start: 20171023, end: 20171023
  35. SOLDESAM [Concomitant]
     Active Substance: DEXAMETHASONE
     Route: 065
     Dates: start: 20170704, end: 20170705
  36. SOLDESAM [Concomitant]
     Active Substance: DEXAMETHASONE
     Route: 065
     Dates: start: 20171023, end: 20171023

REACTIONS (2)
  - Abdominal pain [Recovered/Resolved]
  - Seizure [Recovered/Resolved]

NARRATIVE: CASE EVENT DATE: 20171030
